FAERS Safety Report 4410030-1 (Version None)
Quarter: 2004Q3

REPORT INFORMATION
  Report Type: 
  Country: None (occurrence: None)
  Receive Date: 20040726
  Receipt Date: 20040707
  Transmission Date: 20050211
  Serious: Yes (Life-Threatening)
  Sender: FDA-Public Use
  Company Number: ST-2004-007923

PATIENT
  Age: 88 Year
  Sex: Female

DRUGS (8)
  1. OLMETEC [Suspect]
     Indication: HYPERTENSION
     Dosage: 10 MG DAILY PO
     Route: 048
     Dates: start: 20040624, end: 20040624
  2. NATRIX [Concomitant]
  3. LANIRAPID [Concomitant]
  4. ONEALFA [Concomitant]
  5. RULID [Concomitant]
  6. TUMURA SEIHAITOU [Concomitant]
  7. WARFARIN SODIUM [Concomitant]
  8. OLME [Concomitant]

REACTIONS (5)
  - BLOOD PRESSURE SYSTOLIC DECREASED [None]
  - DEPRESSED LEVEL OF CONSCIOUSNESS [None]
  - DROOLING [None]
  - FEELING ABNORMAL [None]
  - HYPOTENSION [None]
